FAERS Safety Report 4358992-5 (Version None)
Quarter: 2004Q2

REPORT INFORMATION
  Report Type: 
  Country: None (occurrence: None)
  Receive Date: 20040512
  Receipt Date: 20040427
  Transmission Date: 20050107
  Serious: Yes (Life-Threatening)
  Sender: FDA-Public Use
  Company Number: T02-USA-00795-01

PATIENT
  Age: 79 Year
  Sex: Female
  Weight: 63.05 kg

DRUGS (5)
  1. MEMANTINE HCL [Suspect]
     Indication: DEMENTIA ALZHEIMER'S TYPE
     Dosage: 20 MG QHS PO
     Route: 048
     Dates: start: 20020321, end: 20020416
  2. MEMANTINE HCL [Suspect]
     Indication: DEMENTIA ALZHEIMER'S TYPE
     Dosage: 20 MG QD PO
     Route: 048
     Dates: start: 20020417, end: 20020520
  3. DONEPEZIL HCL [Concomitant]
  4. ASPIRIN [Concomitant]
  5. PREMARIN [Concomitant]

REACTIONS (8)
  - BODY TEMPERATURE DECREASED [None]
  - CARDIOMEGALY [None]
  - DISORIENTATION [None]
  - HEMIPARESIS [None]
  - LACUNAR INFARCTION [None]
  - MALIGNANT HYPERTENSION [None]
  - SUPRAVENTRICULAR EXTRASYSTOLES [None]
  - TREMOR [None]
